FAERS Safety Report 6719862-8 (Version None)
Quarter: 2010Q2

REPORT INFORMATION
  Report Type: 
  Country: None (occurrence: None)
  Receive Date: 20100511
  Receipt Date: 20100506
  Transmission Date: 20101027
  Serious: Yes (Other)
  Sender: FDA-Public Use
  Company Number: US-ALLERGAN-1005934US

PATIENT
  Sex: Female

DRUGS (9)
  1. OPTIVE UNIT DOSE [Suspect]
     Indication: DRY EYE
     Dosage: UNK
     Dates: start: 20100504
  2. DITROPAN [Concomitant]
     Dosage: 5 MG, TID
  3. ZOLOFT [Concomitant]
  4. XANAX [Concomitant]
  5. DIVALPROEX SODIUM [Concomitant]
  6. SEROQUEL [Concomitant]
  7. FISH OIL [Concomitant]
  8. MULIT VITAMIN [Concomitant]
  9. GNC WOMANS ULTRA MEGA HEART [Concomitant]

REACTIONS (1)
  - DYSPNOEA [None]
